FAERS Safety Report 9478885 (Version 2)
Quarter: 2013Q3

REPORT INFORMATION
  Report Type: Spontaneous
  Country: US (occurrence: None)
  Receive Date: 20130823
  Receipt Date: 20130920
  Transmission Date: 20140515
  Serious: Yes (Other)
  Sender: FDA-Public Use
  Company Number: USA/USA/13/0034161

PATIENT
  Age: 17 Year
  Sex: Male
  Weight: 81.65 kg

DRUGS (1)
  1. ZENATANE [Suspect]
     Route: 048
     Dates: start: 20130812

REACTIONS (7)
  - Insomnia [None]
  - Myalgia [None]
  - Dizziness [None]
  - Discomfort [None]
  - Nausea [None]
  - Hyperhidrosis [None]
  - Fatigue [None]
